FAERS Safety Report 11505033 (Version 1)
Quarter: 2015Q3

REPORT INFORMATION
  Report Type: Spontaneous
  Country: US (occurrence: None)
  Receive Date: 20150914
  Receipt Date: 20150914
  Transmission Date: 20151125
  Serious: Yes (Hospitalization)
  Sender: FDA-Public Use
  Company Number: None

PATIENT
  Age: 55 Year
  Sex: Male
  Weight: 83.8 kg

DRUGS (2)
  1. TAXOTERE [Suspect]
     Active Substance: DOCETAXEL
     Dates: end: 20150831
  2. ERBITUX [Suspect]
     Active Substance: CETUXIMAB
     Dates: end: 20150831

REACTIONS (3)
  - Mucosal inflammation [None]
  - Pain [None]
  - Hypophagia [None]

NARRATIVE: CASE EVENT DATE: 20150908
